FAERS Safety Report 7299573-3 (Version None)
Quarter: 2010Q4

REPORT INFORMATION
  Report Type: 
  Country: None (occurrence: None)
  Receive Date: 20101223
  Receipt Date: 20100105
  Transmission Date: 20110411
  Serious: Yes (Other)
  Sender: FDA-Public Use
  Company Number: 302777

PATIENT
  Age: 68 Year
  Sex: Male

DRUGS (3)
  1. LEVEMIR [Suspect]
     Indication: INSULIN-REQUIRING TYPE 2 DIABETES MELLITUS
     Dosage: 32 IU
     Dates: end: 20091201
  2. AMARYL [Suspect]
     Indication: INSULIN-REQUIRING TYPE 2 DIABETES MELLITUS
     Dosage: 4 MG BID, ORAL, 2 MG, BID, ORAL
     Route: 048
     Dates: start: 19980101
  3. GLUCOPHAGE /00082701/ (METFORMIN) [Concomitant]

REACTIONS (1)
  - BLOOD GLUCOSE INCREASED [None]
